FAERS Safety Report 12105265 (Version 12)
Quarter: 2017Q1

REPORT INFORMATION
  Report Type: Spontaneous
  Country: US (occurrence: US)
  Receive Date: 20160223
  Receipt Date: 20170306
  Transmission Date: 20170428
  Serious: Yes (Hospitalization, Other)
  Sender: FDA-Public Use
  Company Number: US-GLAXOSMITHKLINE-US2016GSK025215

PATIENT
  Age: 64 Year
  Sex: Female

DRUGS (13)
  1. FLOLAN [Suspect]
     Active Substance: EPOPROSTENOL SODIUM
     Dosage: 13 NG/KG/MIN CONTINUOUSLY
     Route: 042
  2. FLOLAN [Suspect]
     Active Substance: EPOPROSTENOL SODIUM
     Dosage: 12 NG/KG/MIN CONTINUOUSLY
     Route: 042
     Dates: start: 20160216
  3. FLOLAN [Suspect]
     Active Substance: EPOPROSTENOL SODIUM
     Indication: PULMONARY ARTERIAL HYPERTENSION
     Dosage: UNK
  4. FLOLAN [Suspect]
     Active Substance: EPOPROSTENOL SODIUM
     Dosage: 13 DF, CO
  5. NEO-SYNEPHRINE [Suspect]
     Active Substance: PHENYLEPHRINE HYDROCHLORIDE
     Indication: PRODUCT USED FOR UNKNOWN INDICATION
  6. SILDENAFIL. [Concomitant]
     Active Substance: SILDENAFIL
  7. REVATIO [Concomitant]
     Active Substance: SILDENAFIL CITRATE
  8. FLOLAN [Suspect]
     Active Substance: EPOPROSTENOL SODIUM
     Dosage: 13 NG/KG/MIN CONTINUOUSLY
     Route: 042
     Dates: start: 20160216
  9. FLOLAN [Suspect]
     Active Substance: EPOPROSTENOL SODIUM
     Dosage: 13 NG/KG/MIN CONTINUOUSLY
     Route: 042
  10. FLOLAN [Suspect]
     Active Substance: EPOPROSTENOL SODIUM
     Dosage: 12 NG/KG/MIN CONTINUOUSLY
     Route: 042
     Dates: start: 20160216
  11. FLOLAN [Suspect]
     Active Substance: EPOPROSTENOL SODIUM
     Dosage: UNK
  12. FLOLAN [Suspect]
     Active Substance: EPOPROSTENOL SODIUM
     Indication: PULMONARY ARTERIAL HYPERTENSION
     Dosage: 8 NG/KG/MIN, CONTINUOUSLY
     Dates: start: 20160216
  13. FLOLAN [Suspect]
     Active Substance: EPOPROSTENOL SODIUM
     Dosage: 8 NG/KG/MIN, CONTINUOUSLY
     Dates: start: 20160216

REACTIONS (26)
  - Pharyngeal haemorrhage [Unknown]
  - Fall [Unknown]
  - Seizure [Not Recovered/Not Resolved]
  - Tooth infection [Unknown]
  - Back pain [Unknown]
  - Nausea [Unknown]
  - Nasopharyngitis [Unknown]
  - Intercepted drug administration error [Unknown]
  - Bipolar disorder [Unknown]
  - Dizziness [Unknown]
  - Oropharyngeal pain [Unknown]
  - Hospitalisation [Unknown]
  - Haemoptysis [Unknown]
  - Cough [Not Recovered/Not Resolved]
  - Diarrhoea [Unknown]
  - Catheter site pain [Unknown]
  - Pollakiuria [Unknown]
  - Pneumonia [Unknown]
  - Burning sensation [Unknown]
  - Gastroenteritis viral [Unknown]
  - Pruritus generalised [Not Recovered/Not Resolved]
  - Chronic obstructive pulmonary disease [Unknown]
  - Drug dose omission [Unknown]
  - Complication associated with device [Unknown]
  - Vomiting [Unknown]
  - Paraesthesia [Unknown]

NARRATIVE: CASE EVENT DATE: 20160303
